FAERS Safety Report 11769741 (Version 2)
Quarter: 2015Q4

REPORT INFORMATION
  Report Type: Spontaneous
  Country: IT (occurrence: IT)
  Receive Date: 20151123
  Receipt Date: 20151124
  Transmission Date: 20160304
  Serious: Yes (Hospitalization)
  Sender: FDA-Public Use
  Company Number: IT-SA-2015SA182233

PATIENT
  Age: 85 Year
  Sex: Male

DRUGS (7)
  1. OMNIC [Concomitant]
     Active Substance: TAMSULOSIN HYDROCHLORIDE
     Dosage: 0.4 MG?MODIFIED-RELEASE HARD?CAPSULES.
  2. VALDOXAN [Suspect]
     Active Substance: AGOMELATINE
     Indication: DEPRESSION
     Route: 048
     Dates: start: 20150101, end: 20150905
  3. DAPAROX [Suspect]
     Active Substance: PAROXETINE HYDROCHLORIDE
     Indication: DEPRESSION
     Dosage: 33.1 MG/ML ORAL?DROP SOLUTION.
     Route: 048
     Dates: start: 20150101, end: 20150905
  4. COUMADIN [Concomitant]
     Active Substance: WARFARIN SODIUM
     Dosage: 5 MG DIVISIBLE?TABLETS.
  5. LASIX [Suspect]
     Active Substance: FUROSEMIDE
     Indication: HYPERTENSION
     Route: 048
     Dates: start: 20150101, end: 20150905
  6. LYRICA [Concomitant]
     Active Substance: PREGABALIN
     Route: 048
  7. CONGESCOR [Concomitant]
     Active Substance: BISOPROLOL
     Dosage: 20 TABLETS OF?1.25 MG.

REACTIONS (5)
  - Metabolic alkalosis [Recovered/Resolved]
  - Renal failure [Recovered/Resolved]
  - Asthenia [Recovered/Resolved]
  - Electrocardiogram QT prolonged [Recovered/Resolved]
  - Hypokalaemia [Recovered/Resolved]

NARRATIVE: CASE EVENT DATE: 20150904
